FAERS Safety Report 7486359-X (Version None)
Quarter: 2011Q2

REPORT INFORMATION
  Report Type: 
  Country: None (occurrence: None)
  Receive Date: 20110517
  Receipt Date: 20110511
  Transmission Date: 20111010
  Serious: Yes (Death, Other)
  Sender: FDA-Public Use
  Company Number: PHHY2011FR40155

PATIENT
  Age: 48 Year
  Sex: Female

DRUGS (3)
  1. MYCOPHENOLATE MOFETIL [Suspect]
     Dosage: UNK UKN, UNK
  2. TACROLIMUS [Suspect]
     Dosage: UNK UKN, UNK
  3. SIROLIMUS [Suspect]
     Dosage: UNK UKN, UNK

REACTIONS (8)
  - INFECTION [None]
  - SEPSIS [None]
  - HEMIPARESIS [None]
  - NERVOUS SYSTEM DISORDER [None]
  - LEUKOENCEPHALOPATHY [None]
  - CONVULSION [None]
  - HEMIPLEGIA [None]
  - BLINDNESS CORTICAL [None]
